FAERS Safety Report 5864279-1 (Version None)
Quarter: 2008Q3

REPORT INFORMATION
  Report Type: 
  Country: None (occurrence: None)
  Receive Date: 20080829
  Receipt Date: 20080820
  Transmission Date: 20090109
  Serious: Yes (Hospitalization, Other)
  Sender: FDA-Public Use
  Company Number: US-AMGEN-US302917

PATIENT
  Sex: Female

DRUGS (2)
  1. ENBREL [Suspect]
     Indication: RHEUMATOID ARTHRITIS
     Route: 058
     Dates: start: 20001201
  2. RITALIN [Concomitant]

REACTIONS (6)
  - ATTENTION DEFICIT/HYPERACTIVITY DISORDER [None]
  - BACK PAIN [None]
  - ENDOMETRIOSIS [None]
  - INJECTION SITE HAEMATOMA [None]
  - MUSCLE SPASMS [None]
  - PHLEBITIS [None]
